FAERS Safety Report 7348957 (Version 3)
Quarter: 2013Q3

REPORT INFORMATION
  Report Type: Spontaneous
  Country: PT (occurrence: PT)
  Receive Date: 20100408
  Receipt Date: 20130924
  Transmission Date: 20140515
  Serious: Yes (Death)
  Sender: FDA-Public Use
  Company Number: PT-PFIZER INC-2010040167

PATIENT
  Age: 52 Year
  Sex: Male

DRUGS (3)
  1. SUTENT [Suspect]
     Indication: CLEAR CELL RENAL CELL CARCINOMA
     Dosage: 50 MG, 1X/DAY
     Route: 048
     Dates: start: 20090702, end: 20091006
  2. DECADRON [Suspect]
     Route: 048
     Dates: start: 20090907, end: 20090922
  3. OMEPRAZOLE [Concomitant]
     Dosage: 20 MG, UNK
     Route: 048
     Dates: start: 20090907

REACTIONS (5)
  - Paraparesis [Fatal]
  - Oesophagitis [Fatal]
  - Myopathy [Fatal]
  - Aphthous stomatitis [Fatal]
  - Opportunistic infection [Fatal]
